FAERS Safety Report 6558702-7 (Version None)
Quarter: 2010Q1

REPORT INFORMATION
  Report Type: 
  Country: None (occurrence: None)
  Receive Date: 20100129
  Receipt Date: 20100122
  Transmission Date: 20100710
  Serious: Yes (Other)
  Sender: FDA-Public Use
  Company Number: FI-PFIZER INC-2010008805

PATIENT
  Age: 27 Year
  Sex: Female

DRUGS (1)
  1. DEPO-PROVERA [Suspect]
     Indication: CONTRACEPTION
     Dosage: 150 MG, EVERY 3 MONTHS
     Route: 030
     Dates: start: 20081101, end: 20090101

REACTIONS (5)
  - DIZZINESS [None]
  - HYPOAESTHESIA [None]
  - INJECTION SITE REACTION [None]
  - MUSCLE TIGHTNESS [None]
  - WEIGHT INCREASED [None]
